FAERS Safety Report 24322509 (Version 1)
Quarter: 2024Q3

REPORT INFORMATION
  Report Type: Spontaneous
  Country: US (occurrence: US)
  Receive Date: 20240916
  Receipt Date: 20240916
  Transmission Date: 20241017
  Serious: No
  Sender: ALVOGEN
  Company Number: US-ALVOGEN-2024093274

PATIENT

DRUGS (2)
  1. AMPHETAMINE [Suspect]
     Active Substance: AMPHETAMINE
     Indication: Product used for unknown indication
     Dosage: PREVIOUS PRESCRIPTION
  2. AMPHETAMINE [Suspect]
     Active Substance: AMPHETAMINE
     Indication: Product used for unknown indication
     Dosage: DISPENSED DATE: 14-MAR-2024?EXPIRATION DATE: UU-APR-2025

REACTIONS (5)
  - Fatigue [Unknown]
  - Anxiety [Unknown]
  - Drug effect less than expected [Unknown]
  - Product physical issue [Unknown]
  - Product taste abnormal [Unknown]
